FAERS Safety Report 6710187-3 (Version None)
Quarter: 2010Q2

REPORT INFORMATION
  Report Type: 
  Country: None (occurrence: None)
  Receive Date: 20100504
  Receipt Date: 20100428
  Transmission Date: 20101027
  Serious: Yes (Hospitalization, Other)
  Sender: FDA-Public Use
  Company Number: FR-BRISTOL-MYERS SQUIBB COMPANY-15085772

PATIENT
  Age: 84 Year
  Sex: Female

DRUGS (7)
  1. COUMADIN [Suspect]
     Indication: ATRIAL FIBRILLATION
     Dosage: WITHDRAWN ON 23MAR10,RECHALLENGED ON 27MAR10
  2. KARDEGIC [Suspect]
     Indication: CARDIAC DISORDER
     Dosage: INTERRUPTED ON 25MAR10,RESTARTED ON 1APR10
  3. COVERSYL [Concomitant]
  4. LASIX [Concomitant]
     Dosage: LASILIX 40 MG (FUROSEMIDE) 1.5/D
  5. PRAVASTATIN SODIUM [Concomitant]
  6. CORDARONE [Concomitant]
     Dosage: CORDARONE (AMIODARONE) 1/D 5 OVER 7 DAYS
  7. SPIRONOLACTONE [Concomitant]
     Indication: CARDIAC FAILURE
     Dates: start: 20100119

REACTIONS (7)
  - BLOOD CREATININE INCREASED [None]
  - EPISTAXIS [None]
  - HAEMOGLOBIN DECREASED [None]
  - HYPERKALAEMIA [None]
  - HYPONATRAEMIA [None]
  - INTERNATIONAL NORMALISED RATIO DECREASED [None]
  - INTERNATIONAL NORMALISED RATIO INCREASED [None]
